FAERS Safety Report 20820124 (Version 1)
Quarter: 2022Q2

REPORT INFORMATION
  Report Type: Spontaneous
  Country: US (occurrence: None)
  Receive Date: 20220511
  Receipt Date: 20220511
  Transmission Date: 20220721
  Serious: No
  Sender: FDA-Public Use
  Company Number: None

PATIENT
  Age: 88 Year
  Sex: Female
  Weight: 49.44 kg

DRUGS (15)
  1. ENTRESTO [Suspect]
     Active Substance: SACUBITRIL\VALSARTAN
     Indication: Vascular device user
     Dosage: FREQUENCY : DAILY;?
     Route: 048
     Dates: start: 20220226, end: 20220228
  2. CLOPIDOGREL BISULFATE [Concomitant]
     Active Substance: CLOPIDOGREL BISULFATE
  3. LISINOPRIL [Concomitant]
     Active Substance: LISINOPRIL
  4. Metropol succinct ER [Concomitant]
  5. ELIQUIS [Concomitant]
     Active Substance: APIXABAN
  6. LASIX [Concomitant]
     Active Substance: FUROSEMIDE
  7. SOTALOL [Concomitant]
     Active Substance: SOTALOL
  8. LEVOTHYROXINE [Concomitant]
     Active Substance: LEVOTHYROXINE
  9. ALENDRONATE SODIUM [Concomitant]
     Active Substance: ALENDRONATE SODIUM
  10. OMEPRAZOLE [Concomitant]
     Active Substance: OMEPRAZOLE
  11. LORATADINE [Concomitant]
     Active Substance: LORATADINE
  12. AZELASTINE [Concomitant]
     Active Substance: AZELASTINE
  13. MultVites [Vita Fusion] [Concomitant]
  14. ATORVASTATIN [Concomitant]
     Active Substance: ATORVASTATIN
  15. OMEGA 3 [Concomitant]
     Active Substance: CAPSAICIN

REACTIONS (2)
  - Hypotension [None]
  - Heart rate increased [None]

NARRATIVE: CASE EVENT DATE: 20220228
